FAERS Safety Report 9380650 (Version 2)
Quarter: 2013Q3

REPORT INFORMATION
  Report Type: Spontaneous
  Country: US (occurrence: US)
  Receive Date: 20130702
  Receipt Date: 20130711
  Transmission Date: 20140515
  Serious: Yes (Other)
  Sender: FDA-Public Use
  Company Number: CHPA2013US010563

PATIENT
  Age: 87 Year
  Sex: Male

DRUGS (3)
  1. KERI ORIGINAL [Suspect]
     Indication: DRY SKIN
     Dosage: UNK, QD
     Route: 061
     Dates: start: 1988
  2. KERI ORIGINAL [Suspect]
     Indication: THERAPEUTIC SKIN CARE TOPICAL
  3. VASORETIC [Concomitant]
     Indication: HYPERTENSION
     Dosage: 10/25MG, QD
     Dates: start: 1995

REACTIONS (4)
  - Bladder neoplasm [Not Recovered/Not Resolved]
  - Urinary bladder polyp [Not Recovered/Not Resolved]
  - Gastrooesophageal reflux disease [Recovering/Resolving]
  - Therapeutic response unexpected [Unknown]
